FAERS Safety Report 12199826 (Version 1)
Quarter: 2016Q1

REPORT INFORMATION
  Report Type: Spontaneous
  Country: ES (occurrence: ES)
  Receive Date: 20160322
  Receipt Date: 20160322
  Transmission Date: 20160526
  Serious: Yes (Hospitalization)
  Sender: FDA-Public Use
  Company Number: ES-009507513-1603ESP008603

PATIENT
  Age: 81 Year
  Sex: Male

DRUGS (6)
  1. EZETROL 10 MG COMPRIMIDOS [Suspect]
     Active Substance: EZETIMIBE
     Indication: BLOOD CHOLESTEROL INCREASED
     Dosage: 10 MG, QD
     Route: 048
  2. LIPOSIT PROLIB [Interacting]
     Active Substance: FLUVASTATIN SODIUM
     Indication: BLOOD CHOLESTEROL INCREASED
     Dosage: 80 MG, QD
     Route: 048
  3. OMEPRAZOLE. [Interacting]
     Active Substance: OMEPRAZOLE
     Dosage: 20 MG, QD
     Route: 048
  4. CITALOPRAM [Interacting]
     Active Substance: CITALOPRAM HYDROBROMIDE
     Dosage: 10 MG, QD
     Route: 048
  5. CLEXANE (ENOXAPARIN SODIUM) [Interacting]
     Active Substance: ENOXAPARIN SODIUM
     Route: 058
     Dates: end: 20160221
  6. SINTROM [Interacting]
     Active Substance: ACENOCOUMAROL
     Indication: AORTIC VALVE DISEASE
     Dosage: UNK
     Route: 048
     Dates: start: 20160217, end: 20160221

REACTIONS (1)
  - Abdominal wall haematoma [Recovered/Resolved]

NARRATIVE: CASE EVENT DATE: 20160217
